FAERS Safety Report 8139328-0 (Version None)
Quarter: 2012Q1

REPORT INFORMATION
  Report Type: 
  Country: None (occurrence: None)
  Receive Date: 20120215
  Receipt Date: 20120214
  Transmission Date: 20120608
  Serious: No
  Sender: FDA-Public Use
  Company Number: US-BAYER-2012-015181

PATIENT
  Age: 51 Year
  Sex: Female

DRUGS (2)
  1. BETASERON [Suspect]
     Indication: MULTIPLE SCLEROSIS
     Dosage: 0.25 MG, QOD
     Route: 058
     Dates: start: 20110801
  2. SLEEP AID [Concomitant]

REACTIONS (4)
  - NAUSEA [None]
  - VOMITING [None]
  - INJECTION SITE PAIN [None]
  - PAIN IN EXTREMITY [None]
